FAERS Safety Report 4629903-X (Version None)
Quarter: 2005Q2

REPORT INFORMATION
  Report Type: 
  Country: None (occurrence: None)
  Receive Date: 20050408
  Receipt Date: 20050401
  Transmission Date: 20051028
  Serious: Yes (Hospitalization)
  Sender: FDA-Public Use
  Company Number: SE-MERCK-0504SWE00005

PATIENT
  Age: 62 Year
  Sex: Female

DRUGS (4)
  1. VIOXX [Suspect]
     Indication: OSTEOARTHRITIS
     Route: 048
     Dates: start: 20000314, end: 20020601
  2. HYALURONIC ACID [Concomitant]
     Route: 065
  3. WARFARIN SODIUM [Concomitant]
     Route: 065
  4. CYANOCOBALAMIN [Concomitant]
     Route: 065

REACTIONS (2)
  - CEREBROVASCULAR DISORDER [None]
  - PARALYSIS [None]
